FAERS Safety Report 8398705-3 (Version None)
Quarter: 2012Q2

REPORT INFORMATION
  Report Type: 
  Country: None (occurrence: None)
  Receive Date: 20120531
  Receipt Date: 20120529
  Transmission Date: 20120825
  Serious: Yes (Other)
  Sender: FDA-Public Use
  Company Number: VE-ROCHE-1073128

PATIENT
  Sex: Male
  Weight: 79 kg

DRUGS (3)
  1. XELODA [Suspect]
     Indication: RECTAL CANCER
     Route: 048
     Dates: start: 20120519
  2. IRINOTECAN HCL [Concomitant]
     Indication: RECTAL CANCER
  3. CETUXIMAB [Concomitant]
     Indication: RECTAL CANCER

REACTIONS (1)
  - BLISTER [None]
